FAERS Safety Report 20589430 (Version 3)
Quarter: 2022Q2

REPORT INFORMATION
  Report Type: Report from Study
  Country: AT (occurrence: AT)
  Receive Date: 20220314
  Receipt Date: 20220615
  Transmission Date: 20220721
  Serious: Yes (Hospitalization)
  Sender: FDA-Public Use
  Company Number: None

PATIENT
  Age: 47 Year
  Sex: Female
  Weight: 58 kg

DRUGS (26)
  1. CAPECITABINE [Suspect]
     Active Substance: CAPECITABINE
     Indication: HER2 positive breast cancer
     Dosage: FREQUENCY: OTHER MOST RECENT DOSE PRIOR TO THE EVENT: 09/JAN/2021
     Route: 048
     Dates: start: 20200923, end: 20201220
  2. PACLITAXEL [Suspect]
     Active Substance: PACLITAXEL
     Indication: HER2 positive breast cancer
     Route: 042
     Dates: start: 20190724, end: 20190912
  3. ADO-TRASTUZUMAB EMTANSINE [Suspect]
     Active Substance: ADO-TRASTUZUMAB EMTANSINE
     Indication: HER2 positive breast cancer
     Dosage: MOST RECENT DOSE PRIOR TO THE EVENT: 03/JUL/2020
     Route: 042
     Dates: start: 20191014
  4. PERTUZUMAB [Suspect]
     Active Substance: PERTUZUMAB
     Indication: HER2 positive breast cancer
     Route: 042
     Dates: start: 20190724, end: 20190912
  5. LAPATINIB [Suspect]
     Active Substance: LAPATINIB
     Indication: HER2 positive breast cancer
     Dosage: FREQUENCY: OTHER MOST RECENT DOSE PRIOR TO THE EVENT: 09/JAN/2021
     Route: 048
     Dates: start: 20200923
  6. TRASTUZUMAB [Suspect]
     Active Substance: TRASTUZUMAB
     Indication: HER2 positive breast cancer
     Route: 042
     Dates: start: 20190724, end: 20190912
  7. DRONABINOL [Concomitant]
     Active Substance: DRONABINOL
     Dosage: ONGOING  CHECKED
     Dates: start: 20190716
  8. ACETAMINOPHEN [Concomitant]
     Active Substance: ACETAMINOPHEN
     Indication: COVID-19
     Dosage: ONGOING  NOT CHECKED
     Dates: start: 20210302, end: 20210303
  9. EUTHYROX [Concomitant]
     Active Substance: LEVOTHYROXINE SODIUM
     Dosage: ONGOING  CHECKED
     Dates: start: 20190703
  10. LOVENOX [Concomitant]
     Active Substance: ENOXAPARIN SODIUM
     Indication: COVID-19
     Dosage: ONGOING  NOT CHECKED
     Dates: start: 20210302, end: 20210305
  11. TRAZODONE HYDROCHLORIDE [Concomitant]
     Active Substance: TRAZODONE HYDROCHLORIDE
     Dosage: ONGOING  CHECKED
     Dates: start: 20190716
  12. DEXAMETHASONE [Concomitant]
     Active Substance: DEXAMETHASONE
     Indication: COVID-19
     Dosage: ONGOING  NOT CHECKED
     Dates: start: 20210302, end: 20210304
  13. CEOLAT [Concomitant]
     Dosage: ONGOING  CHECKED
     Dates: start: 20190815
  14. ZOFRAN [Concomitant]
     Active Substance: ONDANSETRON HYDROCHLORIDE
     Indication: COVID-19
     Dosage: ONGOING  CHECKED
     Dates: start: 20190704
  15. PANTOPRAZOLE SODIUM [Concomitant]
     Active Substance: PANTOPRAZOLE SODIUM
     Indication: COVID-19
     Dosage: ONGOING  NOT CHECKED
     Dates: start: 20210302, end: 20210303
  16. HYDROMORPHONE HYDROCHLORIDE [Concomitant]
     Active Substance: HYDROMORPHONE HYDROCHLORIDE
     Dosage: ONGOING  CHECKED
     Dates: start: 20190716
  17. CITALOPRAM [Concomitant]
     Active Substance: CITALOPRAM HYDROBROMIDE
     Dosage: ONGOING  CHECKED
     Dates: start: 20190715
  18. ALPRAZOLAM [Concomitant]
     Active Substance: ALPRAZOLAM
     Dosage: ONGOING CHECKED
     Dates: start: 20190715
  19. OLANZAPINE [Concomitant]
     Active Substance: OLANZAPINE
     Dosage: ONGOING  CHECKED
     Dates: start: 20190904
  20. POLYETHYLENE GLYCOL 4000 [Concomitant]
     Active Substance: POLYETHYLENE GLYCOL 4000
     Dosage: ONGOING  CHECKED
     Dates: start: 20190705
  21. SUCRALAN [Concomitant]
     Dosage: ONGOING  CHECKED
     Dates: start: 20190701
  22. ACETAMINOPHEN [Concomitant]
     Active Substance: ACETAMINOPHEN
     Dosage: ONGOING  CHECKED
     Dates: start: 20190701
  23. ENTEROBENE [Concomitant]
     Indication: Diarrhoea
     Dosage: ONGOING - CHECKED
     Dates: start: 20210215
  24. LENDORM [Concomitant]
     Active Substance: BROTIZOLAM
     Indication: Insomnia
     Dosage: ONGOING - CHECKED
     Dates: start: 20211229
  25. ASCORBIC ACID\CALCIUM PHOSPHATE\CHOLECALCIFEROL\CITRIC ACID MONOHYDRAT [Concomitant]
     Active Substance: ASCORBIC ACID\CALCIUM PHOSPHATE\CHOLECALCIFEROL\CITRIC ACID MONOHYDRATE
     Dosage: ONGOING - CHECKED
     Dates: start: 20190717
  26. FERRIC CARBOXYMALTOSE [Concomitant]
     Active Substance: FERRIC CARBOXYMALTOSE
     Dosage: ONGOING  NOT CHECKED
     Dates: start: 20220114, end: 20220114

REACTIONS (1)
  - COVID-19 [Recovered/Resolved]

NARRATIVE: CASE EVENT DATE: 20210222
